FAERS Safety Report 18333988 (Version 1)
Quarter: 2020Q4

REPORT INFORMATION
  Report Type: Spontaneous
  Country: US (occurrence: US)
  Receive Date: 20201001
  Receipt Date: 20201001
  Transmission Date: 20210113
  Serious: Yes (Hospitalization, Other)
  Sender: FDA-Public Use
  Company Number: US-AUROBINDO-AUR-APL-2020-049762

PATIENT
  Age: 22 Year
  Sex: Male

DRUGS (13)
  1. QUETIAPINE. [Interacting]
     Active Substance: QUETIAPINE
     Dosage: 600 MILLIGRAM, ONCE A DAY (AT BEDTIME XR)
     Route: 065
  2. QUETIAPINE. [Interacting]
     Active Substance: QUETIAPINE
     Dosage: 800 MILLIGRAM, ONCE A DAY (AT BEDTIME)
     Route: 065
  3. DIAZEPAM. [Suspect]
     Active Substance: DIAZEPAM
     Indication: ANXIETY
     Dosage: 15 MILLIGRAM, ONCE A DAY (AT BEDTIME)
     Route: 065
  4. LURASIDONE [Suspect]
     Active Substance: LURASIDONE
     Indication: SEIZURE
     Dosage: 80 MILLIGRAM, ONCE A DAY (AT BEDTIME)
     Route: 065
  5. OXCARBAZEPINE. [Interacting]
     Active Substance: OXCARBAZEPINE
     Indication: SEIZURE
     Dosage: 1200 MILLIGRAM, TWO TIMES A DAY
     Route: 065
  6. LACOSAMIDE. [Interacting]
     Active Substance: LACOSAMIDE
     Indication: SEIZURE
     Dosage: 200 MILLIGRAM, TWO TIMES A DAY
     Route: 065
  7. LORAZEPAM. [Suspect]
     Active Substance: LORAZEPAM
     Indication: ANXIETY
     Dosage: 1.5 MILLIGRAM, 3 TIMES A DAY
     Route: 065
  8. BRIVARACETAM [Suspect]
     Active Substance: BRIVARACETAM
     Indication: SEIZURE
     Dosage: 100 MILLIGRAM, TWO TIMES A DAY
     Route: 065
  9. LITHIUM. [Suspect]
     Active Substance: LITHIUM
     Indication: HALLUCINATION
     Dosage: UNK
     Route: 065
  10. ARIPIPRAZOLE. [Suspect]
     Active Substance: ARIPIPRAZOLE
     Indication: SEIZURE
     Dosage: 2 MILLIGRAM, ONCE A DAY
     Route: 065
  11. LEVETIRACETAM. [Interacting]
     Active Substance: LEVETIRACETAM
     Indication: SEIZURE
     Dosage: 1000 MILLIGRAM, TWO TIMES A DAY
     Route: 065
  12. LORAZEPAM. [Suspect]
     Active Substance: LORAZEPAM
     Indication: SEIZURE
     Dosage: 1 MILLIGRAM, 3 TIMES A DAY
     Route: 065
  13. QUETIAPINE. [Interacting]
     Active Substance: QUETIAPINE
     Indication: SEIZURE
     Dosage: 200 MILLIGRAM, TWO TIMES A DAY (IMMEDIATE RELEASE)
     Route: 065

REACTIONS (15)
  - Agranulocytosis [Unknown]
  - Neutropenia [Recovered/Resolved]
  - Delusion [Recovered/Resolved]
  - Leukopenia [Unknown]
  - Sedation [Unknown]
  - Hallucination [Recovering/Resolving]
  - Balance disorder [Unknown]
  - Weight increased [Unknown]
  - Suicidal ideation [Recovered/Resolved]
  - Psychotic disorder [Unknown]
  - Depression [Unknown]
  - Mood altered [Recovering/Resolving]
  - Anxiety [Recovering/Resolving]
  - Hallucination, auditory [Recovering/Resolving]
  - Drug interaction [Unknown]
